FAERS Safety Report 9062893 (Version 1)
Quarter: 2013Q1

REPORT INFORMATION
  Report Type: Report from Study
  Country: US (occurrence: US)
  Receive Date: 20130129
  Receipt Date: 20130129
  Transmission Date: 20140127
  Serious: No
  Sender: FDA-Public Use
  Company Number: US-ABBOTT-12P-163-0945092-00

PATIENT
  Age: 48 Year
  Sex: Female

DRUGS (10)
  1. HUMIRA 40 MG/0.8 ML PEN [Suspect]
     Indication: CROHN^S DISEASE
     Route: 058
     Dates: start: 201111
  2. NADOLOL [Concomitant]
     Indication: BLOOD PRESSURE
  3. NORTRIPTYLINE [Concomitant]
     Indication: FIBROMYALGIA
     Dosage: AT BEDTIME
  4. REQUIP [Concomitant]
     Indication: FIBROMYALGIA
  5. MICROZIDE [Concomitant]
     Indication: HYPERTENSION
     Dosage: 25MG DAILY
  6. CYMBALTA [Concomitant]
     Indication: FIBROMYALGIA
     Dosage: 60MG DAILY
  7. DICYCLOMINE [Concomitant]
     Indication: ABDOMINAL PAIN UPPER
     Dosage: 4 DAILY AS NEEDED
  8. NEXIUM [Concomitant]
     Indication: GASTROOESOPHAGEAL REFLUX DISEASE
  9. LORTAB [Concomitant]
     Indication: FIBROMYALGIA
     Dosage: 7.7/500 AS NEEDED
  10. POTASSIUM [Concomitant]
     Indication: PRODUCT USED FOR UNKNOWN INDICATION
     Dosage: 10MEQ DAILY

REACTIONS (2)
  - Hypoaesthesia [Not Recovered/Not Resolved]
  - Joint swelling [Not Recovered/Not Resolved]
